FAERS Safety Report 12847675 (Version 2)
Quarter: 2016Q4

REPORT INFORMATION
  Report Type: Report from Study
  Country: US (occurrence: US)
  Receive Date: 20161014
  Receipt Date: 20161020
  Transmission Date: 20170207
  Serious: Yes (Hospitalization)
  Sender: FDA-Public Use
  Company Number: US-GILEAD-2016-0238280

PATIENT
  Age: 21 Year
  Sex: Female
  Weight: 100 kg

DRUGS (3)
  1. TADALAFIL [Concomitant]
     Active Substance: TADALAFIL
     Dosage: UNK
     Dates: start: 20160910
  2. AMBRISENTAN [Suspect]
     Active Substance: AMBRISENTAN
     Indication: PULMONARY ARTERIAL HYPERTENSION
     Dosage: 5 MG, QD
     Route: 048
     Dates: start: 20160922
  3. RANITIDINE. [Concomitant]
     Active Substance: RANITIDINE
     Dosage: UNK
     Dates: start: 20160910

REACTIONS (4)
  - Fluid overload [Recovering/Resolving]
  - Musculoskeletal pain [Recovered/Resolved]
  - Flank pain [Recovered/Resolved]
  - Neck pain [Recovered/Resolved]

NARRATIVE: CASE EVENT DATE: 20161003
